FAERS Safety Report 8207348-3 (Version None)
Quarter: 2012Q1

REPORT INFORMATION
  Report Type: 
  Country: None (occurrence: None)
  Receive Date: 20120314
  Receipt Date: 20120117
  Transmission Date: 20120608
  Serious: No
  Sender: FDA-Public Use
  Company Number: US-GLAXOSMITHKLINE-A0961695A

PATIENT
  Age: 65 Year
  Sex: Female

DRUGS (1)
  1. NICORETTE (MINT) [Suspect]
     Indication: EX-TOBACCO USER
     Dosage: 4MG SINGLE DOSE
     Dates: start: 20120116

REACTIONS (3)
  - THERMAL BURN [None]
  - DYSPEPSIA [None]
  - NAUSEA [None]
